FAERS Safety Report 9645182 (Version 2)
Quarter: 2013Q4

REPORT INFORMATION
  Report Type: Report from Study
  Country: AU (occurrence: AU)
  Receive Date: 20131025
  Receipt Date: 20131113
  Transmission Date: 20140711
  Serious: Yes (Death, Other)
  Sender: FDA-Public Use
  Company Number: AU-ASTELLAS-2013US011033

PATIENT
  Age: 52 Year
  Sex: Female

DRUGS (3)
  1. ERLOTINIB TABLET [Suspect]
     Indication: LUNG NEOPLASM MALIGNANT
     Dosage: 150 MG, UID/QD
     Route: 048
     Dates: start: 20130621, end: 20130906
  2. SOMAC [Concomitant]
     Indication: GASTROOESOPHAGEAL REFLUX DISEASE
     Dosage: 40 MG, UID/QD
     Route: 048
     Dates: start: 20130601, end: 20130906
  3. DOCUSATE SODIUM\SENNOSIDES [Concomitant]
     Indication: CONSTIPATION
     Dosage: 4 DF, (2 DF, 2 IN 1 D)
     Route: 048
     Dates: start: 20130601, end: 20130906

REACTIONS (2)
  - Malignant neoplasm progression [Unknown]
  - Pulmonary haemorrhage [Fatal]
